FAERS Safety Report 18562821 (Version 1)
Quarter: 2020Q4

REPORT INFORMATION
  Report Type: Spontaneous
  Country: US (occurrence: US)
  Receive Date: 20201130
  Receipt Date: 20201130
  Transmission Date: 20210114
  Serious: No
  Sender: FDA-Public Use
  Company Number: US-ROCHE-2655856

PATIENT

DRUGS (2)
  1. ZYRTEC (UNITED STATES) [Concomitant]
     Indication: HYPERSENSITIVITY
  2. LUCENTIS [Suspect]
     Active Substance: RANIBIZUMAB
     Indication: PRODUCT USED FOR UNKNOWN INDICATION
     Route: 065
     Dates: start: 20200330

REACTIONS (19)
  - Intentional product misuse [Unknown]
  - Fatigue [Recovered/Resolved]
  - Asthenia [Recovered/Resolved]
  - Feeling abnormal [Recovered/Resolved]
  - Weight decreased [Unknown]
  - Off label use [Unknown]
  - Loss of libido [Unknown]
  - Hypersomnia [Unknown]
  - Balance disorder [Recovered/Resolved]
  - Pain in extremity [Unknown]
  - Hyperresponsive to stimuli [Unknown]
  - Muscular weakness [Recovered/Resolved]
  - Feeling jittery [Unknown]
  - Dizziness [Recovered/Resolved]
  - Decreased appetite [Unknown]
  - Tinnitus [Unknown]
  - Headache [Recovered/Resolved]
  - Nausea [Unknown]
  - Arthralgia [Recovered/Resolved]
